FAERS Safety Report 11510018 (Version 1)
Quarter: 2015Q3

REPORT INFORMATION
  Report Type: Spontaneous
  Country: US (occurrence: US)
  Receive Date: 20150915
  Receipt Date: 20150915
  Transmission Date: 20151125
  Serious: No
  Sender: FDA-Public Use
  Company Number: US-JNJFOC-20150219441

PATIENT
  Age: 79 Year
  Sex: Female
  Weight: 68.04 kg

DRUGS (6)
  1. PROCRIT (ERYTHROPOIETIN) [Concomitant]
     Indication: DYSPHAGIA
     Dosage: 4000 OR 4500 UNITS, VERY HIGH DOSE
     Route: 058
     Dates: start: 20150218
  2. MOTRIN IB [Suspect]
     Active Substance: IBUPROFEN
     Indication: ARTHRALGIA
     Route: 048
     Dates: start: 20150219
  3. PROCRIT (ERYTHROPOIETIN) [Concomitant]
     Indication: PLASMA CELL MYELOMA
     Dosage: 4000 OR 4500 UNITS, VERY HIGH DOSE
     Route: 058
     Dates: start: 20150218
  4. NEUPOGEN [Concomitant]
     Active Substance: FILGRASTIM
     Route: 065
     Dates: start: 20150218
  5. ULTRAM [Concomitant]
     Active Substance: TRAMADOL HYDROCHLORIDE
     Indication: ARTHRALGIA
     Route: 048
     Dates: start: 201502
  6. ULTRACET [Concomitant]
     Active Substance: ACETAMINOPHEN\TRAMADOL HYDROCHLORIDE
     Indication: PROCEDURAL PAIN
     Route: 048

REACTIONS (2)
  - Drug ineffective [Unknown]
  - Gait disturbance [Not Recovered/Not Resolved]

NARRATIVE: CASE EVENT DATE: 20150219
